FAERS Safety Report 7021394-7 (Version None)
Quarter: 2010Q3

REPORT INFORMATION
  Report Type: 
  Country: None (occurrence: None)
  Receive Date: 20100929
  Receipt Date: 20100924
  Transmission Date: 20110219
  Serious: No
  Sender: FDA-Public Use
  Company Number: US-PFIZER INC-2010122267

PATIENT
  Sex: Female

DRUGS (1)
  1. CLEOCIN [Suspect]
     Route: 042

REACTIONS (1)
  - RASH [None]
